FAERS Safety Report 6357293-3 (Version None)
Quarter: 2009Q3

REPORT INFORMATION
  Report Type: 
  Country: None (occurrence: None)
  Receive Date: 20090916
  Receipt Date: 20090904
  Transmission Date: 20100115
  Serious: Yes (Other)
  Sender: FDA-Public Use
  Company Number: PHEH2009US09073

PATIENT
  Sex: Female
  Weight: 55.4 kg

DRUGS (4)
  1. RECLAST [Suspect]
     Dosage: 5 MG IV
     Route: 042
     Dates: start: 20090603
  2. CALCIUM WITH VITAMIN D [Concomitant]
     Dosage: 1200 MG, QD
  3. BENICAR [Concomitant]
     Dosage: 40 MG, QD
  4. PRILOSEC [Concomitant]
     Dosage: 20 MG, QD

REACTIONS (16)
  - ARTHRALGIA [None]
  - BEDRIDDEN [None]
  - CHILLS [None]
  - DIPLOPIA [None]
  - DYSPEPSIA [None]
  - FATIGUE [None]
  - HYPERHIDROSIS [None]
  - HYPOACUSIS [None]
  - INFLUENZA LIKE ILLNESS [None]
  - JOINT STIFFNESS [None]
  - MITRAL VALVE PROLAPSE [None]
  - MUSCULAR WEAKNESS [None]
  - MYALGIA [None]
  - NAUSEA [None]
  - PYREXIA [None]
  - VOMITING [None]
